FAERS Safety Report 9104706 (Version 1)
Quarter: 2013Q1

REPORT INFORMATION
  Report Type: Spontaneous
  Country: US (occurrence: US)
  Receive Date: 20130220
  Receipt Date: 20130220
  Transmission Date: 20140127
  Serious: Yes (Death, Life-Threatening, Hospitalization, Other)
  Sender: FDA-Public Use
  Company Number: US-JNJFOC-20130203610

PATIENT
  Sex: 0

DRUGS (20)
  1. RISPERIDONE [Suspect]
     Indication: DEMENTIA
     Route: 065
  2. RISPERIDONE [Suspect]
     Indication: POST-TRAUMATIC STRESS DISORDER
     Route: 065
  3. RISPERIDONE [Suspect]
     Indication: AFFECTIVE DISORDER
     Route: 065
  4. RISPERIDONE [Suspect]
     Indication: SCHIZOPHRENIA
     Route: 065
  5. RISPERIDONE [Suspect]
     Indication: PSYCHOTIC DISORDER
     Route: 065
  6. ARIPIPRAZOLE [Suspect]
     Indication: DEMENTIA
     Route: 065
  7. ARIPIPRAZOLE [Suspect]
     Indication: POST-TRAUMATIC STRESS DISORDER
     Route: 065
  8. ARIPIPRAZOLE [Suspect]
     Indication: AFFECTIVE DISORDER
     Route: 065
  9. ARIPIPRAZOLE [Suspect]
     Indication: SCHIZOPHRENIA
     Route: 065
  10. ARIPIPRAZOLE [Suspect]
     Indication: PSYCHOTIC DISORDER
     Route: 065
  11. OLANZAPINE [Suspect]
     Indication: DEMENTIA
     Route: 065
  12. OLANZAPINE [Suspect]
     Indication: POST-TRAUMATIC STRESS DISORDER
     Route: 065
  13. OLANZAPINE [Suspect]
     Indication: AFFECTIVE DISORDER
     Route: 065
  14. OLANZAPINE [Suspect]
     Indication: SCHIZOPHRENIA
     Route: 065
  15. OLANZAPINE [Suspect]
     Indication: PSYCHOTIC DISORDER
     Route: 065
  16. QUETIAPINE [Suspect]
     Indication: DEMENTIA
     Route: 065
  17. QUETIAPINE [Suspect]
     Indication: POST-TRAUMATIC STRESS DISORDER
     Route: 065
  18. QUETIAPINE [Suspect]
     Indication: AFFECTIVE DISORDER
     Route: 065
  19. QUETIAPINE [Suspect]
     Indication: SCHIZOPHRENIA
     Route: 065
  20. QUETIAPINE [Suspect]
     Indication: PSYCHOTIC DISORDER
     Route: 065

REACTIONS (4)
  - Death [Fatal]
  - Metabolic syndrome [Unknown]
  - Drug ineffective [Unknown]
  - Adverse event [Unknown]
